FAERS Safety Report 9125632 (Version 1)
Quarter: 2013Q1

REPORT INFORMATION
  Report Type: Spontaneous
  Country: JP (occurrence: JP)
  Receive Date: 20130228
  Receipt Date: 20130228
  Transmission Date: 20140127
  Serious: Yes (Death, Life-Threatening)
  Sender: FDA-Public Use
  Company Number: JP-AMGEN-JPNSP2013009979

PATIENT
  Age: 58 Year
  Sex: Female
  Weight: 60 kg

DRUGS (16)
  1. VECTIBIX [Suspect]
     Indication: COLON CANCER RECURRENT
     Dosage: 300 MG, Q2WK
     Route: 041
     Dates: start: 20121009, end: 20121023
  2. VECTIBIX [Suspect]
     Dosage: 230 MG, Q2WK
     Route: 041
     Dates: start: 20121106, end: 20130115
  3. CAMPTO [Suspect]
     Indication: COLON CANCER RECURRENT
     Dosage: 200 MG, Q2WK
     Route: 041
     Dates: start: 20121009, end: 20121218
  4. 5-FU /00098801/ [Concomitant]
     Indication: COLON CANCER RECURRENT
     Dosage: 500 MG, Q2WK
     Route: 040
     Dates: start: 20121009, end: 20130115
  5. 5-FU /00098801/ [Concomitant]
     Dosage: 3125 MG, Q2WK
     Route: 041
     Dates: start: 20121009, end: 20130115
  6. ISOVORIN                           /00566702/ [Concomitant]
     Indication: COLON CANCER RECURRENT
     Dosage: 250 MG, Q2WK
     Route: 041
     Dates: start: 20121009, end: 20121218
  7. TENORMIN [Concomitant]
     Indication: HYPERTENSION
     Dosage: 50 MG, QD
     Route: 048
     Dates: start: 20090403, end: 20130206
  8. ADALAT CR [Concomitant]
     Indication: HYPERTENSION
     Dosage: 40 MG, QD
     Route: 048
     Dates: start: 20090403, end: 20130206
  9. RENIVACE [Concomitant]
     Indication: HYPERTENSION
     Dosage: 10 MG, QD
     Route: 048
     Dates: start: 20090403, end: 20130206
  10. SEIBULE [Concomitant]
     Indication: DIABETES MELLITUS
     Dosage: 50 MG, TID
     Route: 048
     Dates: start: 20090403, end: 20130206
  11. MINOMYCIN [Concomitant]
     Indication: PROPHYLAXIS
     Dosage: 100 MG, BID
     Route: 048
     Dates: start: 20121009, end: 20130206
  12. UNSPECIFIED HERBAL [Concomitant]
     Indication: PROPHYLAXIS AGAINST DIARRHOEA
     Dosage: 2.5 G, TID
     Dates: start: 20121009, end: 20130206
  13. PYDOXAL [Concomitant]
     Indication: PROPHYLAXIS
     Dosage: 10 MG, TID
     Route: 048
     Dates: start: 20121009, end: 20130206
  14. HIRUDOID                           /00723701/ [Concomitant]
     Indication: PROPHYLAXIS
     Dosage: UNK
     Route: 062
     Dates: start: 20121009, end: 20130206
  15. KYTRIL [Concomitant]
     Dosage: 3 MG, Q2WK
     Route: 041
     Dates: start: 20121009
  16. DECADRON                           /00016001/ [Concomitant]
     Dosage: 6.6 MG, Q2WK
     Route: 041
     Dates: start: 20121009

REACTIONS (3)
  - Venous thrombosis limb [Not Recovered/Not Resolved]
  - Colon cancer [Fatal]
  - Pulmonary embolism [Not Recovered/Not Resolved]
